FAERS Safety Report 24622334 (Version 3)
Quarter: 2024Q4

REPORT INFORMATION
  Report Type: Report from Study
  Country: PR (occurrence: PR)
  Receive Date: 20241115
  Receipt Date: 20241216
  Transmission Date: 20250115
  Serious: Yes (Other)
  Sender: ABBVIE
  Company Number: PR-ABBVIE-5999529

PATIENT
  Age: 65 Year
  Sex: Female

DRUGS (2)
  1. SYNTHROID [Suspect]
     Active Substance: LEVOTHYROXINE SODIUM
     Indication: Hypothyroidism
     Dosage: DOSE: 0.88
     Route: 048
     Dates: start: 2004
  2. CARBOPLATIN\PACLITAXEL [Concomitant]
     Active Substance: CARBOPLATIN\PACLITAXEL
     Indication: Product used for unknown indication
     Dates: start: 202407

REACTIONS (5)
  - Ovarian cancer metastatic [Not Recovered/Not Resolved]
  - Fibromyalgia [Unknown]
  - Endometrial cancer metastatic [Not Recovered/Not Resolved]
  - Unevaluable event [Unknown]
  - Unevaluable event [Unknown]

NARRATIVE: CASE EVENT DATE: 20240401
